FAERS Safety Report 15284924 (Version 2)
Quarter: 2019Q1

REPORT INFORMATION
  Report Type: Report from Study
  Country: IT (occurrence: IT)
  Receive Date: 20180816
  Receipt Date: 20190313
  Transmission Date: 20190417
  Serious: Yes (Other)
  Sender: FDA-Public Use
  Company Number: IT-INCYTE CORPORATION-2018IN006902

PATIENT

DRUGS (3)
  1. JAKAVI [Suspect]
     Active Substance: RUXOLITINIB
     Dosage: 30 OT, QD
     Route: 065
     Dates: start: 20171221
  2. JAKAVI [Suspect]
     Active Substance: RUXOLITINIB
     Indication: PRODUCT USED FOR UNKNOWN INDICATION
     Dosage: 30 OT, QD
     Route: 065
     Dates: start: 20171031, end: 20171126
  3. JAKAVI [Suspect]
     Active Substance: RUXOLITINIB
     Dosage: 15 OT, QD
     Route: 065
     Dates: start: 20171127, end: 20171220

REACTIONS (3)
  - Leukopenia [Recovered/Resolved]
  - Anaemia [Unknown]
  - Thrombocytopenia [Recovered/Resolved]

NARRATIVE: CASE EVENT DATE: 20171127
